FAERS Safety Report 4691280-6 (Version None)
Quarter: 2005Q2

REPORT INFORMATION
  Report Type: 
  Country: None (occurrence: None)
  Receive Date: 20050614
  Receipt Date: 20050531
  Transmission Date: 20051028
  Serious: Yes (Disabling, Other)
  Sender: FDA-Public Use
  Company Number: 2005081819

PATIENT
  Age: 72 Year
  Sex: Male
  Weight: 77.1115 kg

DRUGS (3)
  1. VIAGRA [Suspect]
     Indication: ERECTILE DYSFUNCTION
     Dosage: (50 MG, AS NECESSARY), ORAL
     Route: 048
     Dates: start: 19980101
  2. TOPROL-XL [Suspect]
     Indication: BLOOD PRESSURE INCREASED
     Dosage: 100 MG (1D)
  3. LEVOXYL [Concomitant]

REACTIONS (15)
  - ANGINA PECTORIS [None]
  - BENIGN PROSTATIC HYPERPLASIA [None]
  - BLINDNESS [None]
  - BLOOD PRESSURE IMMEASURABLE [None]
  - BLOOD PRESSURE INADEQUATELY CONTROLLED [None]
  - BLOOD PRESSURE INCREASED [None]
  - BLOOD PRESSURE ORTHOSTATIC DECREASED [None]
  - CONDITION AGGRAVATED [None]
  - CYANOPSIA [None]
  - DIZZINESS [None]
  - INTRA-OCULAR INJECTION [None]
  - MACULAR DEGENERATION [None]
  - PAIN IN EXTREMITY [None]
  - PAIN IN JAW [None]
  - WEIGHT INCREASED [None]
